FAERS Safety Report 10513707 (Version 3)
Quarter: 2014Q4

REPORT INFORMATION
  Report Type: Spontaneous
  Country: US (occurrence: US)
  Receive Date: 20141013
  Receipt Date: 20141110
  Transmission Date: 20150528
  Serious: Yes (Hospitalization)
  Sender: FDA-Public Use
  Company Number: US-SA-2014SA108278

PATIENT
  Age: 51 Year
  Sex: Female

DRUGS (1)
  1. FERRLECIT [Suspect]
     Active Substance: SODIUM FERRIC GLUCONATE COMPLEX
     Indication: ANAEMIA
     Route: 065
     Dates: start: 20140807

REACTIONS (5)
  - Hospitalisation [Unknown]
  - Chills [Unknown]
  - Hypoaesthesia [Unknown]
  - Hypertension [Unknown]
  - Dyspnoea [Unknown]
